FAERS Safety Report 8597966-5 (Version None)
Quarter: 2012Q3

REPORT INFORMATION
  Report Type: 
  Country: None (occurrence: None)
  Receive Date: 20120816
  Receipt Date: 20120813
  Transmission Date: 20120928
  Serious: Yes (Other)
  Sender: FDA-Public Use
  Company Number: US-BAYER-2012-062898

PATIENT
  Age: 50 Year
  Sex: Female
  Weight: 63.492 kg

DRUGS (3)
  1. BETASERON [Suspect]
     Indication: MULTIPLE SCLEROSIS
     Dosage: 0.3 MG, QOD
     Route: 058
     Dates: start: 20080101
  2. MELATONIN [Concomitant]
     Indication: INSOMNIA
     Dosage: 3 MG, HS
  3. BETASERON [Suspect]
     Dosage: 0.3 MG, QOD
     Route: 058
     Dates: start: 20010509

REACTIONS (3)
  - INFLUENZA LIKE ILLNESS [None]
  - EXTREMITY NECROSIS [None]
  - INJECTION SITE REACTION [None]
